FAERS Safety Report 10031915 (Version 3)
Quarter: 2014Q2

REPORT INFORMATION
  Report Type: Spontaneous
  Country: JP (occurrence: JP)
  Receive Date: 20140324
  Receipt Date: 20140422
  Transmission Date: 20141212
  Serious: Yes (Hospitalization, Other)
  Sender: FDA-Public Use
  Company Number: JP-PFIZER INC-2014070628

PATIENT
  Age: 70 Year
  Sex: Male

DRUGS (2)
  1. XALATAN [Suspect]
     Indication: GLAUCOMA
     Dosage: 1 GTT, DAILY
     Route: 047
  2. TIMOLOL MALEATE [Suspect]
     Route: 047

REACTIONS (1)
  - Gastrointestinal haemorrhage [Unknown]
